FAERS Safety Report 10221131 (Version 1)
Quarter: 2014Q2

REPORT INFORMATION
  Report Type: Report from Study
  Country: PL (occurrence: PL)
  Receive Date: 20140606
  Receipt Date: 20140606
  Transmission Date: 20141212
  Serious: Yes (Death)
  Sender: FDA-Public Use
  Company Number: PL-ROCHE-1412418

PATIENT
  Sex: 0

DRUGS (6)
  1. RITUXIMAB [Suspect]
     Indication: CHRONIC LYMPHOCYTIC LEUKAEMIA
     Route: 065
  2. RITUXIMAB [Suspect]
     Indication: NON-HODGKIN^S LYMPHOMA
  3. BENDAMUSTINE [Suspect]
     Indication: CHRONIC LYMPHOCYTIC LEUKAEMIA
     Dosage: MONOTHERAPY IN CLL PATIENTS.
     Route: 065
  4. BENDAMUSTINE [Suspect]
     Indication: NON-HODGKIN^S LYMPHOMA
     Dosage: IN COMBINATION WIT RIUXIMAB IN CLL PATIENTS.
     Route: 065
  5. BENDAMUSTINE [Suspect]
     Dosage: MONOTHERAPY IN NHL PATIENTS
     Route: 065
  6. BENDAMUSTINE [Suspect]
     Dosage: IN COMBINATION WITH RITUXIMAB IN NHL PATIENTS.
     Route: 065

REACTIONS (1)
  - Oesophageal carcinoma [Fatal]
